FAERS Safety Report 6786798-6 (Version None)
Quarter: 2010Q2

REPORT INFORMATION
  Report Type: 
  Country: None (occurrence: None)
  Receive Date: 20100623
  Receipt Date: 20100609
  Transmission Date: 20101027
  Serious: Yes (Other)
  Sender: FDA-Public Use
  Company Number: PHHY2010DE39282

PATIENT
  Age: 71 Year
  Sex: Male

DRUGS (1)
  1. GLEEVEC [Suspect]
     Indication: GASTROINTESTINAL STROMAL TUMOUR
     Dosage: 400 MG DAILY

REACTIONS (5)
  - FATIGUE [None]
  - LYMPHOPROLIFERATIVE DISORDER [None]
  - METASTASES TO LIVER [None]
  - NEOPLASM RECURRENCE [None]
  - PERIORBITAL OEDEMA [None]
